FAERS Safety Report 9481558 (Version 1)
Quarter: 2013Q3

REPORT INFORMATION
  Report Type: Spontaneous
  Country: US (occurrence: US)
  Receive Date: 20130828
  Receipt Date: 20130828
  Transmission Date: 20140515
  Serious: Yes (Other)
  Sender: FDA-Public Use
  Company Number: US-AMGEN-KDL176530

PATIENT
  Age: 47 Year
  Sex: Female

DRUGS (2)
  1. ENBREL [Suspect]
     Indication: ANKYLOSING SPONDYLITIS
     Dosage: 25 MG, 2 TIMES/WK
     Route: 058
     Dates: start: 20051021
  2. METHOTREXATE [Concomitant]
     Dosage: 17.5 MG, QWK

REACTIONS (9)
  - Hepatic enzyme increased [Unknown]
  - Chest pain [Not Recovered/Not Resolved]
  - Abdominal pain [Not Recovered/Not Resolved]
  - Vomiting [Unknown]
  - Chills [Not Recovered/Not Resolved]
  - Laryngitis [Unknown]
  - Nasopharyngitis [Unknown]
  - Dysgeusia [Not Recovered/Not Resolved]
  - Pyrexia [Not Recovered/Not Resolved]
